FAERS Safety Report 23100669 (Version 1)
Quarter: 2023Q4

REPORT INFORMATION
  Report Type: Other
  Country: US (occurrence: None)
  Receive Date: 20231024
  Receipt Date: 20231024
  Transmission Date: 20240109
  Serious: No
  Sender: FDA-Public Use
  Company Number: US-ROCHE-3429478

PATIENT
  Age: 69 Year
  Sex: Female
  Weight: 83.536 kg

DRUGS (6)
  1. OCREVUS [Suspect]
     Active Substance: OCRELIZUMAB
     Indication: Multiple sclerosis
     Dosage: YES
     Route: 042
     Dates: start: 20230318
  2. VALIUM [Suspect]
     Active Substance: DIAZEPAM
     Indication: Product used for unknown indication
     Route: 048
  3. BACLOFEN [Concomitant]
     Active Substance: BACLOFEN
  4. PROZAC [Concomitant]
     Active Substance: FLUOXETINE HYDROCHLORIDE
  5. ERGOCALCIFEROL [Concomitant]
     Active Substance: ERGOCALCIFEROL
  6. LORATADINE [Concomitant]
     Active Substance: LORATADINE

REACTIONS (5)
  - Eczema [Not Recovered/Not Resolved]
  - Mass [Not Recovered/Not Resolved]
  - Blood calcium increased [Unknown]
  - Optic neuritis [Unknown]
  - Oral herpes [Recovered/Resolved]

NARRATIVE: CASE EVENT DATE: 20230601
